FAERS Safety Report 8420776-6 (Version None)
Quarter: 2012Q2

REPORT INFORMATION
  Report Type: 
  Country: None (occurrence: None)
  Receive Date: 20120608
  Receipt Date: 20120530
  Transmission Date: 20120825
  Serious: No
  Sender: FDA-Public Use
  Company Number: US-PFIZER INC-2012132272

PATIENT
  Sex: Female

DRUGS (2)
  1. INDERAL LA [Suspect]
     Indication: MIGRAINE
     Dosage: 120 MG, ALTERNATE DAY
  2. PROPRANOLOL HYDROCHLORIDE [Suspect]
     Indication: MIGRAINE
     Dosage: 120 MG, UNK

REACTIONS (1)
  - HEART RATE INCREASED [None]
